FAERS Safety Report 5540623-X (Version None)
Quarter: 2007Q4

REPORT INFORMATION
  Report Type: 
  Country: None (occurrence: None)
  Receive Date: 20071129
  Receipt Date: 20070814
  Transmission Date: 20080405
  Serious: Yes (Hospitalization, Other)
  Sender: FDA-Public Use
  Company Number: US200703002412

PATIENT
  Age: 42 Year
  Sex: Male
  Weight: 113.4 kg

DRUGS (10)
  1. ZYPREXA [Suspect]
     Dosage: 10 MG
     Dates: start: 20030107, end: 20051101
  2. ZOLOFT [Concomitant]
  3. BUSPIRONE HCL [Concomitant]
  4. AMBIEN [Concomitant]
  5. CLONAZEPAM [Concomitant]
  6. VICODIN [Concomitant]
  7. OMEPRAZOLE [Concomitant]
  8. CELEBREX [Concomitant]
  9. OXYCONTIN [Concomitant]
  10. OXYCODONE HCL [Concomitant]

REACTIONS (8)
  - BLOOD CHOLESTEROL INCREASED [None]
  - BLOOD PRESSURE DIASTOLIC INCREASED [None]
  - BLOOD TRIGLYCERIDES INCREASED [None]
  - DIABETES MELLITUS [None]
  - DIABETIC COMA [None]
  - DIABETIC KETOACIDOSIS [None]
  - HYPERGLYCAEMIA [None]
  - PANCREATITIS [None]
